FAERS Safety Report 25404319 (Version 1)
Quarter: 2025Q2

REPORT INFORMATION
  Report Type: Spontaneous
  Country: US (occurrence: US)
  Receive Date: 20250606
  Receipt Date: 20250606
  Transmission Date: 20250716
  Serious: No
  Sender: PIERRE FABRE MEDICAMENT
  Company Number: US-PFM-2024-02922

PATIENT
  Age: 0 Year
  Sex: Male
  Weight: 8.9 kg

DRUGS (3)
  1. HEMANGEOL [Suspect]
     Active Substance: PROPRANOLOL HYDROCHLORIDE
     Indication: Haemangioma
     Dosage: 1.3 ML, BID (2/DAY)
     Dates: start: 20240416
  2. HEMANGEOL [Suspect]
     Active Substance: PROPRANOLOL HYDROCHLORIDE
     Dosage: 2.6 ML, BID (2/DAY)
  3. HEMANGEOL [Suspect]
     Active Substance: PROPRANOLOL HYDROCHLORIDE
     Dosage: 3.4 ML, BID (2/DAY)

REACTIONS (5)
  - Hyperhidrosis [Unknown]
  - Sleep disorder [Unknown]
  - Irritability [Unknown]
  - Product administered to patient of inappropriate age [Unknown]
  - Off label use [Unknown]

NARRATIVE: CASE EVENT DATE: 20240401
